FAERS Safety Report 8462521-4 (Version None)
Quarter: 2012Q2

REPORT INFORMATION
  Report Type: 
  Country: None (occurrence: None)
  Receive Date: 20120625
  Receipt Date: 20120618
  Transmission Date: 20120825
  Serious: Yes (Other)
  Sender: FDA-Public Use
  Company Number: US-BAYER-2012-061890

PATIENT
  Age: 21 Year
  Sex: Female

DRUGS (10)
  1. GUAIFENESIN W/DEXTROMETHORPHAN [Concomitant]
     Dosage: 10-100 MG/5 ML AS NEEDED
     Route: 048
  2. VALTREX [Concomitant]
     Dosage: 500 MG, DAILY
     Route: 048
  3. DEXAMETHASONE W/TOBRAMYCIN [Concomitant]
     Dosage: 0.3 +#8211; 0.1%
     Route: 047
  4. LOTRISONE [Concomitant]
     Dosage: 1 +#8211; 0.05% CREAM
     Route: 061
  5. YAZ [Suspect]
  6. CLARITIN-D [Concomitant]
     Dosage: 5-120 MG EVERY 12 HOURS AS NEEDED
     Route: 048
  7. TUBERSOL [Concomitant]
     Dosage: 5 UNIT/0.1 ML
  8. VALTREX [Concomitant]
  9. DIFLUCAN [Concomitant]
     Dosage: 150 MG, QD
     Route: 048
  10. AMOXICILLIN [Concomitant]
     Dosage: 500 MG TWICE DAILY FOR 10 DAYS
     Route: 048

REACTIONS (1)
  - DEEP VEIN THROMBOSIS [None]
